FAERS Safety Report 21802576 (Version 1)
Quarter: 2022Q4

REPORT INFORMATION
  Report Type: Spontaneous
  Country: FR (occurrence: FR)
  Receive Date: 20221231
  Receipt Date: 20221231
  Transmission Date: 20230113
  Serious: Yes (Other)
  Sender: FDA-Public Use
  Company Number: None

PATIENT
  Age: 10 Year
  Sex: Male
  Weight: 67 kg

DRUGS (15)
  1. VINCRISTINE SULFATE [Suspect]
     Active Substance: VINCRISTINE SULFATE
     Indication: Acute lymphocytic leukaemia
     Dates: start: 20191021, end: 20210722
  2. DOXORUBICIN [Suspect]
     Active Substance: DOXORUBICIN
     Indication: Acute lymphocytic leukaemia
     Dates: start: 20200504, end: 20200525
  3. METHOTREXATE [Suspect]
     Active Substance: METHOTREXATE
     Indication: Acute lymphocytic leukaemia
     Dates: start: 20200227, end: 20200409
  4. METHOTREXATE [Suspect]
     Active Substance: METHOTREXATE
     Dosage: UNIT DOSE: 144 MG , FREQUENCY TIME : 1 TOTAL, DURATION : 368 DAYS
     Dates: start: 20191014, end: 20201016
  5. METHOTREXATE [Suspect]
     Active Substance: METHOTREXATE
     Dosage: UNIT DOSE: 36 MG , FREQUENCY TIME : 1 WEEK, DURATION : 172 DAYS
     Dates: start: 20210731, end: 20220119
  6. CYTARABINE [Suspect]
     Active Substance: CYTARABINE
     Indication: Acute lymphocytic leukaemia
     Dates: start: 20191025, end: 20210729
  7. CYTARABINE [Suspect]
     Active Substance: CYTARABINE
     Dosage: UNIT DOSE: 1.7 GRAM, FREQUENCY TIME : 1 TOTAL, DURATION : 223 DAYS
     Dates: start: 20191211, end: 20200721
  8. HYDROCORTISONE [Suspect]
     Active Substance: HYDROCORTISONE
     Indication: Acute lymphocytic leukaemia
     Dates: start: 20191025, end: 20200622
  9. DEXAMETHASONE [Suspect]
     Active Substance: DEXAMETHASONE
     Indication: Acute lymphocytic leukaemia
     Dates: start: 20200504, end: 20200524
  10. MERCAPTOPURINE [Suspect]
     Active Substance: MERCAPTOPURINE
     Indication: Acute lymphocytic leukaemia
     Dates: start: 20191209, end: 20220119
  11. ERWINASE [Suspect]
     Active Substance: ASPARAGINASE ERWINIA CHRYSANTHEMI
     Indication: Acute lymphocytic leukaemia
     Dates: start: 20200507, end: 20200520
  12. PEGASPARGASE [Suspect]
     Active Substance: PEGASPARGASE
     Indication: Acute lymphocytic leukaemia
     Dates: start: 20191026, end: 20191223
  13. DAUNORUBICIN [Suspect]
     Active Substance: DAUNORUBICIN
     Indication: Acute lymphocytic leukaemia
     Dates: start: 20191014, end: 20191105
  14. CYCLOPHOSPHAMIDE [Suspect]
     Active Substance: CYCLOPHOSPHAMIDE
     Indication: Acute lymphocytic leukaemia
     Dates: start: 20191209, end: 20200619
  15. THIOGUANINE [Suspect]
     Active Substance: THIOGUANINE
     Indication: Acute lymphocytic leukaemia
     Dates: start: 20200619, end: 20200630

REACTIONS (3)
  - Chronic hepatitis [Not Recovered/Not Resolved]
  - Hepatic steatosis [Not Recovered/Not Resolved]
  - Hepatic fibrosis [Not Recovered/Not Resolved]

NARRATIVE: CASE EVENT DATE: 20220316
